FAERS Safety Report 8770461 (Version 1)
Quarter: 2012Q4

REPORT INFORMATION
  Report Type: 
  Country: US (occurrence: US)
  Receive Date: 20120906
  Receipt Date: 20120906
  Transmission Date: 20130627
  Serious: Yes (Other)
  Sender: FDA-Public Use
  Company Number: PHEH2012US017017

PATIENT
  Age: 66 Year
  Sex: Female

DRUGS (2)
  1. ZOMETA [Suspect]
     Indication: METASTASES TO BONE
     Dates: start: 201109
  2. ARIMIDEX [Concomitant]

REACTIONS (5)
  - Osteoporosis [Unknown]
  - Stress fracture [Unknown]
  - Arthralgia [Unknown]
  - Pain in extremity [Unknown]
  - Femur fracture [None]
